FAERS Safety Report 7350195-5 (Version None)
Quarter: 2011Q1

REPORT INFORMATION
  Report Type: 
  Country: None (occurrence: None)
  Receive Date: 20110314
  Receipt Date: 20110303
  Transmission Date: 20110831
  Serious: Yes (Hospitalization)
  Sender: FDA-Public Use
  Company Number: B0705322A

PATIENT
  Sex: Female
  Weight: 56 kg

DRUGS (5)
  1. LENALIDOMIDE [Suspect]
     Indication: MULTIPLE MYELOMA
     Dosage: 10MG PER DAY
     Route: 048
     Dates: start: 20070609
  2. MELPHALAN [Suspect]
     Indication: MULTIPLE MYELOMA
     Dosage: 10MG PER DAY
     Route: 048
     Dates: start: 20070609
  3. PREDNISONE TAB [Suspect]
     Indication: MULTIPLE MYELOMA
     Dosage: 116MG PER DAY
     Route: 048
     Dates: start: 20070609
  4. UNKNOWN MEDICATION [Concomitant]
     Route: 048
  5. MARCUMAR [Concomitant]
     Indication: ANTICOAGULANT THERAPY
     Route: 048

REACTIONS (12)
  - FEBRILE NEUTROPENIA [None]
  - BLOOD PRESSURE SYSTOLIC INCREASED [None]
  - HAEMOGLOBIN DECREASED [None]
  - HAEMATOCRIT DECREASED [None]
  - GASTROENTERITIS NOROVIRUS [None]
  - OSTEOPOROSIS [None]
  - CARDIOMEGALY [None]
  - SPINAL OSTEOARTHRITIS [None]
  - AORTIC ARTERIOSCLEROSIS [None]
  - AORTIC ELONGATION [None]
  - DILATATION VENTRICULAR [None]
  - LEUKOPENIA [None]
